FAERS Safety Report 6640649-9 (Version None)
Quarter: 2010Q1

REPORT INFORMATION
  Report Type: 
  Country: None (occurrence: None)
  Receive Date: 20100302
  Receipt Date: 20100110
  Transmission Date: 20100710
  Serious: No
  Sender: FDA-Public Use
  Company Number: 2010003891

PATIENT
  Sex: Male

DRUGS (1)
  1. TOVIAZ [Suspect]

REACTIONS (2)
  - DYSURIA [None]
  - MICTURITION URGENCY [None]
